FAERS Safety Report 9100706 (Version 1)
Quarter: 2013Q1

REPORT INFORMATION
  Report Type: Report from Study
  Country: GB (occurrence: GB)
  Receive Date: 20130215
  Receipt Date: 20130215
  Transmission Date: 20140127
  Serious: Yes (Hospitalization)
  Sender: FDA-Public Use
  Company Number: GB-COVIDIEN/TYCO HEALTHCARE/MALLINCKRODT-T201300817

PATIENT
  Age: 61 Year
  Sex: Female
  Weight: 50.9 kg

DRUGS (4)
  1. EXALGO EXTENDED RELEASE [Suspect]
     Indication: CANCER PAIN
     Dosage: 24 MG, IN 1 DAY
     Route: 048
     Dates: start: 20010222, end: 20010224
  2. CLODRONATE [Suspect]
     Indication: METASTASES TO BONE
     Dosage: 1500 MG, IN 2 WEEK
     Route: 042
     Dates: start: 200005
  3. LETROZOLE [Concomitant]
     Dosage: 1 MG, IN 1 DAY
     Route: 048
  4. AMYTRIPTYLLIN [Concomitant]
     Indication: SEDATION
     Dosage: 25 MG, IN 1 DAY
     Route: 048

REACTIONS (1)
  - Vomiting [Recovered/Resolved]
